FAERS Safety Report 6388207-8 (Version None)
Quarter: 2009Q4

REPORT INFORMATION
  Report Type: 
  Country: None (occurrence: None)
  Receive Date: 20091005
  Receipt Date: 20090831
  Transmission Date: 20100525
  Serious: No
  Sender: FDA-Public Use
  Company Number: US-BAYER-200914097BCC

PATIENT
  Sex: Male

DRUGS (2)
  1. ALEVE (CAPLET) [Suspect]
     Indication: ARTHRITIS
     Dosage: UNIT DOSE: 220 MG
     Route: 048
  2. ASPIRIN [Suspect]
     Indication: DRUG USE FOR UNKNOWN INDICATION
     Route: 048

REACTIONS (1)
  - DYSPEPSIA [None]
